FAERS Safety Report 25545541 (Version 8)
Quarter: 2025Q4

REPORT INFORMATION
  Report Type: Spontaneous
  Country: JP (occurrence: JP)
  Receive Date: 20250711
  Receipt Date: 20251107
  Transmission Date: 20260118
  Serious: Yes (Other)
  Sender: JOURNEY MEDICAL CORPORATION
  Company Number: JP-JOURNEY MEDICAL CORPORATION-2024JNY00102

PATIENT
  Age: 47 Year
  Sex: Female
  Weight: 77 kg

DRUGS (14)
  1. QBREXZA [Suspect]
     Active Substance: GLYCOPYRRONIUM TOSYLATE
     Indication: Hyperhidrosis
     Dosage: 1 DOSAGE FORM/DAY (USED AT NIGHT)
     Route: 061
     Dates: start: 20230419, end: 20250521
  2. OXYBUTYNIN CHLORIDE [Suspect]
     Active Substance: OXYBUTYNIN CHLORIDE
     Indication: Hyperhidrosis
     Dosage: 0.14 G - 0.28 G/DAY, APPLIED TO BOTH HANDS
     Route: 061
     Dates: start: 20230621
  3. GLYCOSAMINOGLYCANS [Suspect]
     Active Substance: GLYCOSAMINOGLYCANS
     Indication: Dry skin
     Dosage: 9 MG (ABOUT 3G, APPLIED TO FACE AND TRUNK)
     Route: 061
     Dates: start: 20240508
  4. GLYCOSAMINOGLYCANS [Concomitant]
     Active Substance: GLYCOSAMINOGLYCANS
     Indication: Dry skin
     Dosage: 6 MG
     Route: 061
     Dates: start: 20210519
  5. GLYCOSAMINOGLYCANS [Concomitant]
     Active Substance: GLYCOSAMINOGLYCANS
     Indication: Onychoclasis
  6. BROMHEXINE HYDROCHLORIDE [Concomitant]
     Active Substance: BROMHEXINE HYDROCHLORIDE
     Indication: Cough
     Dosage: 12 MG
     Route: 048
     Dates: start: 20221130
  7. BILASTINE [Concomitant]
     Active Substance: BILASTINE
     Indication: Pruritus
     Dosage: 20 MG
     Route: 048
     Dates: start: 20211020
  8. EPINASTINE HYDROCHLORIDE [Concomitant]
     Active Substance: EPINASTINE HYDROCHLORIDE
     Indication: Conjunctivitis allergic
     Dosage: UNK
     Route: 061
     Dates: start: 20220201
  9. NIFEDIPINE [Concomitant]
     Active Substance: NIFEDIPINE
     Indication: Hypertension
     Dosage: 40 MG
     Route: 048
     Dates: start: 20250308
  10. ENTRESTO [Concomitant]
     Active Substance: SACUBITRIL\VALSARTAN
     Indication: Hypertension
     Dosage: 200 MG
     Route: 048
  11. OPALMON [Concomitant]
     Active Substance: LIMAPROST
     Indication: Spinal stenosis
     Dosage: 15 ?G
     Route: 048
  12. PREGABALIN [Concomitant]
     Active Substance: PREGABALIN
     Indication: Spinal stenosis
     Route: 048
  13. METHYLCOBALAMIN [Concomitant]
     Active Substance: METHYLCOBALAMIN
     Indication: Spinal stenosis
     Dosage: 1500 ?G
     Route: 048
  14. ADALAT CC [Concomitant]
     Active Substance: NIFEDIPINE
     Indication: Hypertension
     Dosage: 40 MG
     Route: 048

REACTIONS (14)
  - Dry eye [Recovering/Resolving]
  - Thirst [Recovered/Resolved]
  - Productive cough [Recovered/Resolved]
  - Dermatitis contact [Recovering/Resolving]
  - Urinary retention [Recovered/Resolved]
  - Hot flush [Recovering/Resolving]
  - Blood pressure increased [Unknown]
  - Compensatory sweating [Unknown]
  - Constipation [Recovered/Resolved]
  - Face oedema [Recovered/Resolved]
  - Dry skin [Recovering/Resolving]
  - Hypoaesthesia [Not Recovered/Not Resolved]
  - Intentional product misuse [Unknown]
  - Accidental exposure to product [Unknown]

NARRATIVE: CASE EVENT DATE: 20230703
